FAERS Safety Report 4945868-5 (Version None)
Quarter: 2006Q1

REPORT INFORMATION
  Report Type: 
  Country: None (occurrence: None)
  Receive Date: 20060117
  Receipt Date: 20041213
  Transmission Date: 20060701
  Serious: Yes (Hospitalization)
  Sender: FDA-Public Use
  Company Number: A03200404225

PATIENT
  Age: 79 Year
  Sex: Male
  Weight: 88.905 kg

DRUGS (2)
  1. PLAVIX [Suspect]
     Dosage: 75 MG QD - ORAL
     Route: 048
     Dates: start: 20040604
  2. HEPARIN [Suspect]
     Indication: ANGIOGRAM
     Dates: start: 20040604

REACTIONS (1)
  - THROMBOCYTOPENIA [None]
